FAERS Safety Report 26121367 (Version 1)
Quarter: 2025Q4

REPORT INFORMATION
  Report Type: Spontaneous
  Country: US (occurrence: None)
  Receive Date: 20251203
  Receipt Date: 20251203
  Transmission Date: 20260117
  Serious: No
  Sender: FDA-CTU
  Company Number: None

PATIENT

DRUGS (1)
  1. IOPAMIDOL [Suspect]
     Active Substance: IOPAMIDOL

REACTIONS (5)
  - Dysphonia [None]
  - Oxygen saturation decreased [None]
  - Heart rate increased [None]
  - Ocular hyperaemia [None]
  - Contrast media reaction [None]
